FAERS Safety Report 13668821 (Version 1)
Quarter: 2017Q2

REPORT INFORMATION
  Report Type: Spontaneous
  Country: NL (occurrence: NL)
  Receive Date: 20170620
  Receipt Date: 20170620
  Transmission Date: 20170830
  Serious: Yes (Death)
  Sender: FDA-Public Use
  Company Number: NL-TEVA-778346ACC

PATIENT
  Age: 61 Year
  Sex: Male
  Weight: 82 kg

DRUGS (2)
  1. OXALIPLATINE INFOPL CONC 5MG/ML [Suspect]
     Active Substance: OXALIPLATIN
     Dosage: 260MG 1 TIME INTRAVENOUSLY VIA INFUSION
     Route: 042
     Dates: start: 20170317
  2. CAPECITABINE TABLET FO 500MG [Suspect]
     Active Substance: CAPECITABINE
     Indication: COLON CANCER
     Dosage: 4000 MILLIGRAM DAILY; 2 TIMES DAILY 2000MG
     Route: 048
     Dates: start: 20170317, end: 20170329

REACTIONS (4)
  - Headache [Recovered/Resolved]
  - Chest pain [Fatal]
  - Fatigue [Unknown]
  - Diffuse alveolar damage [Fatal]

NARRATIVE: CASE EVENT DATE: 201703
